FAERS Safety Report 8887560 (Version 1)
Quarter: 2012Q4

REPORT INFORMATION
  Report Type: Spontaneous
  Country: GB (occurrence: None)
  Receive Date: 20121031
  Receipt Date: 20121031
  Transmission Date: 20130627
  Serious: Yes (Hospitalization, Other)
  Sender: FDA-Public Use
  Company Number: FK201203152

PATIENT
  Age: 86 Year
  Sex: Male

DRUGS (1)
  1. VANCOMYCIN [Suspect]
     Indication: CLOSTRIDIAL INFECTION
     Route: 048

REACTIONS (1)
  - Cutaneous vasculitis [None]
